FAERS Safety Report 9404640 (Version 2)
Quarter: 2013Q3

REPORT INFORMATION
  Report Type: Spontaneous
  Country: ZA (occurrence: ZA)
  Receive Date: 20130717
  Receipt Date: 20130902
  Transmission Date: 20140515
  Serious: Yes (Other)
  Sender: FDA-Public Use
  Company Number: PHHY2013ZA075025

PATIENT
  Age: 12 Year
  Sex: Female

DRUGS (2)
  1. RITALIN LA [Suspect]
     Indication: ATTENTION DEFICIT/HYPERACTIVITY DISORDER
     Dosage: UNK UKN, UNK
     Dates: start: 2012
  2. RITALIN LA [Suspect]
     Dosage: UNK UKN, UNK

REACTIONS (1)
  - Tetany [Unknown]
